FAERS Safety Report 19659122 (Version 3)
Quarter: 2021Q3

REPORT INFORMATION
  Report Type: Spontaneous
  Country: US (occurrence: US)
  Receive Date: 20210805
  Receipt Date: 20210823
  Transmission Date: 20211014
  Serious: No
  Sender: FDA-Public Use
  Company Number: US-TEVA-2021-US-1938460

PATIENT

DRUGS (1)
  1. ESTRADIOL TEVA [Suspect]
     Active Substance: ESTRADIOL
     Dosage: 15 ESTRADIOL PILLS
     Route: 065

REACTIONS (4)
  - Emotional disorder [Unknown]
  - Product substitution issue [Unknown]
  - Drug ineffective [Unknown]
  - Weight increased [Unknown]
